FAERS Safety Report 25902470 (Version 1)
Quarter: 2025Q4

REPORT INFORMATION
  Report Type: Spontaneous
  Country: TN (occurrence: TN)
  Receive Date: 20251009
  Receipt Date: 20251009
  Transmission Date: 20260118
  Serious: Yes (Death, Disabling)
  Sender: RECORDATI
  Company Number: TN-ORPHANEU-2025007000

PATIENT
  Age: 2 Year
  Sex: Female

DRUGS (2)
  1. CARGLUMIC ACID [Suspect]
     Active Substance: CARGLUMIC ACID
     Indication: Methylmalonic acidaemia
     Dosage: UNK
  2. CARGLUMIC ACID [Suspect]
     Active Substance: CARGLUMIC ACID
     Indication: Hyperammonaemia

REACTIONS (2)
  - Infection [Fatal]
  - Neurodevelopmental delay [Unknown]
